FAERS Safety Report 20896836 (Version 1)
Quarter: 2022Q2

REPORT INFORMATION
  Report Type: Spontaneous
  Country: US (occurrence: None)
  Receive Date: 20220531
  Receipt Date: 20220531
  Transmission Date: 20220720
  Serious: Yes (Hospitalization, Other)
  Sender: FDA-Public Use
  Company Number: None

PATIENT
  Age: 68 Year
  Sex: Female

DRUGS (1)
  1. CAPECITABINE [Suspect]
     Active Substance: CAPECITABINE
     Dosage: 2500MG DAILY ORAL
     Route: 048
     Dates: start: 202201

REACTIONS (10)
  - Cerebrovascular accident [None]
  - Stomatitis [None]
  - Palmar-plantar erythrodysaesthesia syndrome [None]
  - Dry skin [None]
  - Dry skin [None]
  - Reading disorder [None]
  - Balance disorder [None]
  - Decreased appetite [None]
  - Neuropathy peripheral [None]
  - Nail disorder [None]

NARRATIVE: CASE EVENT DATE: 20220531
